FAERS Safety Report 4559428-1 (Version None)
Quarter: 2005Q1

REPORT INFORMATION
  Report Type: 
  Country: None (occurrence: None)
  Receive Date: 20050119
  Receipt Date: 20050110
  Transmission Date: 20050727
  Serious: Yes (Death, Hospitalization, Other)
  Sender: FDA-Public Use
  Company Number: 2004-12-0852

PATIENT
  Age: 32 Year
  Sex: Female

DRUGS (3)
  1. PEG-INTRON [Suspect]
     Indication: HEPATITIS C
     Dosage: 80 MCG SUBCUTANEOUS
     Route: 058
     Dates: start: 20040101, end: 20040303
  2. REBETOL [Suspect]
     Indication: HEPATITIS C
     Dosage: WEIGH-BASED ORAL
     Route: 048
     Dates: start: 20040101, end: 20040303
  3. RISPERIDONE [Suspect]
     Indication: DELUSIONAL DISORDER, PERSECUTORY TYPE

REACTIONS (6)
  - CARDIO-RESPIRATORY ARREST [None]
  - DELUSIONAL DISORDER, PERSECUTORY TYPE [None]
  - DRUG INTOLERANCE [None]
  - EXTRAPYRAMIDAL DISORDER [None]
  - SUDDEN DEATH [None]
  - THROMBOPHLEBITIS [None]
